FAERS Safety Report 9702127 (Version 3)
Quarter: 2014Q1

REPORT INFORMATION
  Report Type: Report from Study
  Country: US (occurrence: US)
  Receive Date: 20131121
  Receipt Date: 20140206
  Transmission Date: 20141002
  Serious: Yes (Hospitalization, Other)
  Sender: FDA-Public Use
  Company Number: US-ABBVIE-13P-163-1168516-00

PATIENT
  Age: 25 Year
  Sex: Female
  Weight: 79.45 kg

DRUGS (13)
  1. HUMIRA [Suspect]
     Indication: CROHN^S DISEASE
     Dates: start: 20121103, end: 201304
  2. HUMIRA [Suspect]
     Route: 058
     Dates: start: 201307
  3. ZANTAC [Concomitant]
     Indication: GASTROOESOPHAGEAL REFLUX DISEASE
  4. PRILOSEC [Concomitant]
     Indication: GASTROOESOPHAGEAL REFLUX DISEASE
  5. OXYCODONE [Concomitant]
     Indication: PAIN
     Dosage: PRN
  6. OXYCODONE [Concomitant]
     Indication: CROHN^S DISEASE
  7. ZOFRAN [Concomitant]
     Indication: NAUSEA
     Dosage: PRN
  8. ZOFRAN [Concomitant]
     Indication: CROHN^S DISEASE
  9. ATIVAN [Concomitant]
     Indication: ANXIETY
  10. 6-MP [Concomitant]
     Indication: PRODUCT USED FOR UNKNOWN INDICATION
     Dates: start: 201210, end: 201303
  11. PENTASA [Concomitant]
     Indication: PRODUCT USED FOR UNKNOWN INDICATION
     Dates: start: 201210
  12. METHOTREXATE [Concomitant]
     Indication: CROHN^S DISEASE
     Dates: start: 201210
  13. IMURAN [Concomitant]
     Indication: PRODUCT USED FOR UNKNOWN INDICATION

REACTIONS (4)
  - Small intestinal obstruction [Recovered/Resolved]
  - Intestinal stenosis [Unknown]
  - Fistula [Unknown]
  - Neoplasm of appendix [Recovered/Resolved]
